FAERS Safety Report 4312752-X (Version None)
Quarter: 2004Q1

REPORT INFORMATION
  Report Type: 
  Country: None (occurrence: None)
  Receive Date: 20040305
  Receipt Date: 20040122
  Transmission Date: 20041129
  Serious: Yes (Hospitalization)
  Sender: FDA-Public Use
  Company Number: US-BRISTOL-MYERS SQUIBB COMPANY-12484176

PATIENT
  Age: 79 Year
  Sex: Female

DRUGS (7)
  1. COUMADIN [Suspect]
     Indication: PROPHYLAXIS
     Route: 048
     Dates: start: 19990101, end: 20030801
  2. VALSARTAN [Concomitant]
     Indication: ESSENTIAL HYPERTENSION
     Route: 048
     Dates: start: 19991011
  3. AMLODIPINE [Concomitant]
     Indication: ESSENTIAL HYPERTENSION
     Route: 048
     Dates: start: 19991011
  4. ESIDRIX [Concomitant]
     Route: 048
  5. ADVAIR DISKUS 100/50 [Concomitant]
  6. AVELOX [Concomitant]
     Dates: start: 20030730, end: 20030801
  7. AVANDIA [Concomitant]
     Dates: start: 20010330

REACTIONS (12)
  - ANAEMIA [None]
  - BURSITIS [None]
  - FALL [None]
  - FATIGUE [None]
  - GASTROINTESTINAL HAEMORRHAGE [None]
  - MALAISE [None]
  - MELAENA [None]
  - MYOSITIS [None]
  - PYREXIA [None]
  - RHABDOMYOLYSIS [None]
  - UPPER RESPIRATORY TRACT INFECTION [None]
  - VIRAL UPPER RESPIRATORY TRACT INFECTION [None]
